FAERS Safety Report 4989324-7 (Version None)
Quarter: 2006Q2

REPORT INFORMATION
  Report Type: 
  Country: None (occurrence: None)
  Receive Date: 20060425
  Receipt Date: 20060414
  Transmission Date: 20061013
  Serious: Yes (Death)
  Sender: FDA-Public Use
  Company Number: 8016409

PATIENT
  Age: 6 Year
  Sex: Male

DRUGS (2)
  1. TUSSIONEX [Suspect]
     Indication: COUGH
     Dosage: 2.5 ML 2/D PO
     Route: 048
     Dates: start: 20060410, end: 20060412
  2. AZITHROMAX [Suspect]
     Dosage: PO
     Route: 048
     Dates: start: 20060410

REACTIONS (1)
  - OVERDOSE [None]
